FAERS Safety Report 12979696 (Version 1)
Quarter: 2016Q4

REPORT INFORMATION
  Report Type: Spontaneous
  Country: SE (occurrence: SE)
  Receive Date: 20161128
  Receipt Date: 20161128
  Transmission Date: 20170207
  Serious: Yes (Other)
  Sender: FDA-Public Use
  Company Number: SE-TEVA-713124ISR

PATIENT
  Age: 71 Year
  Sex: Female

DRUGS (5)
  1. METFORMIN MEDA [Concomitant]
     Indication: TYPE 2 DIABETES MELLITUS
     Dosage: 2000 MILLIGRAM DAILY;
  2. GLIMEPIRID ACTAVIS [Suspect]
     Active Substance: GLIMEPIRIDE
     Indication: TYPE 2 DIABETES MELLITUS
     Dosage: 1 MILLIGRAM DAILY;
     Dates: start: 20150319, end: 20150620
  3. GLIMEPIRID ACTAVIS [Suspect]
     Active Substance: GLIMEPIRIDE
     Dosage: 1.5 MILLIGRAM DAILY;
     Dates: start: 20150620, end: 201507
  4. CITODON [Concomitant]
     Active Substance: ACETAMINOPHEN\CODEINE PHOSPHATE
  5. GLIMEPIRID ACTAVIS [Suspect]
     Active Substance: GLIMEPIRIDE
     Dosage: 2 MILLIGRAM DAILY;
     Dates: start: 201507, end: 20161004

REACTIONS (9)
  - Eye colour change [Unknown]
  - Mobility decreased [Recovered/Resolved]
  - Arthralgia [Unknown]
  - Abnormal weight gain [Unknown]
  - Enzyme level increased [Unknown]
  - Pain [Recovered/Resolved]
  - Muscular weakness [Unknown]
  - Chromaturia [Unknown]
  - Blood sodium decreased [Unknown]

NARRATIVE: CASE EVENT DATE: 2015
